FAERS Safety Report 16767772 (Version 1)
Quarter: 2019Q3

REPORT INFORMATION
  Report Type: Spontaneous
  Country: CA (occurrence: CA)
  Receive Date: 20190903
  Receipt Date: 20190903
  Transmission Date: 20191005
  Serious: Yes (Other)
  Sender: FDA-Public Use
  Company Number: CA-PFIZER INC-2019376622

PATIENT
  Age: 88 Year
  Sex: Female

DRUGS (1)
  1. ZOLEDRONIC ACID [Suspect]
     Active Substance: ZOLEDRONIC ACID
     Dosage: UNK [1 EVERY 1 YEAR(S)]
     Route: 042

REACTIONS (3)
  - Influenza like illness [Recovered/Resolved]
  - Blood pressure increased [Recovered/Resolved]
  - Peripheral swelling [Recovered/Resolved]
